FAERS Safety Report 8197255-7 (Version None)
Quarter: 2012Q1

REPORT INFORMATION
  Report Type: 
  Country: None (occurrence: None)
  Receive Date: 20120309
  Receipt Date: 20120301
  Transmission Date: 20120608
  Serious: Yes (Other)
  Sender: FDA-Public Use
  Company Number: CA-JNJFOC-20120301262

PATIENT
  Sex: Female
  Weight: 75.6 kg

DRUGS (9)
  1. REMICADE [Suspect]
     Indication: CROHN'S DISEASE
     Dosage: HAD 20 INFUSIONS
     Route: 042
  2. AMOXICILLIN AND CLAVULANATE POTASSIUM [Concomitant]
     Route: 065
  3. ZOPLICONE [Concomitant]
     Route: 065
  4. PLAVIX [Concomitant]
     Route: 065
  5. FUROSEMIDE [Concomitant]
     Route: 065
  6. CARVEDILOL [Concomitant]
     Route: 065
  7. FLUOXETINE HCL [Concomitant]
     Route: 065
  8. NORVASC [Concomitant]
     Route: 065
  9. CRESTOR [Concomitant]
     Route: 065

REACTIONS (2)
  - BRONCHITIS [None]
  - RETINAL ISCHAEMIA [None]
